FAERS Safety Report 9614955 (Version 1)
Quarter: 2013Q4

REPORT INFORMATION
  Report Type: Spontaneous
  Country: US (occurrence: None)
  Receive Date: 20131009
  Receipt Date: 20131009
  Transmission Date: 20140711
  Serious: Yes (Other)
  Sender: FDA-Public Use
  Company Number: None

PATIENT
  Age: 21 Year
  Sex: Male

DRUGS (3)
  1. RIBAVIRIN [Suspect]
     Indication: HEPATITIS C
     Dates: start: 20131006, end: 20131008
  2. PEGASYS [Suspect]
  3. INCIVAK 375 MG [Concomitant]

REACTIONS (2)
  - Pregnancy of partner [None]
  - Contraindication to medical treatment [None]
